FAERS Safety Report 5183508-3 (Version None)
Quarter: 2006Q4

REPORT INFORMATION
  Report Type: 
  Country: None (occurrence: None)
  Receive Date: 20061220
  Receipt Date: 20060117
  Transmission Date: 20070319
  Serious: No
  Sender: FDA-Public Use
  Company Number: US-GLAXOSMITHKLINE-A0589633A

PATIENT
  Age: 24 Year
  Sex: Female

DRUGS (1)
  1. EQUATE NTS 14MG [Suspect]
     Indication: SMOKING CESSATION THERAPY
     Dates: start: 20060113, end: 20060117

REACTIONS (8)
  - ABNORMAL DREAMS [None]
  - ASTHENIA [None]
  - CHEST PAIN [None]
  - DIZZINESS [None]
  - HEART RATE INCREASED [None]
  - HYPOAESTHESIA [None]
  - INSOMNIA [None]
  - NAUSEA [None]
